FAERS Safety Report 6821325-6 (Version None)
Quarter: 2010Q3

REPORT INFORMATION
  Report Type: 
  Country: None (occurrence: None)
  Receive Date: 20100707
  Receipt Date: 20080708
  Transmission Date: 20110219
  Serious: Yes (Other)
  Sender: FDA-Public Use
  Company Number: US-PFIZER INC-2008057003

PATIENT
  Sex: Female
  Weight: 56.7 kg

DRUGS (4)
  1. SERTRALINE [Suspect]
     Indication: STRESS
     Dosage: DAILY
     Dates: start: 20060811, end: 20080622
  2. SERTRALINE [Suspect]
     Indication: ANXIETY
  3. ACIPHEX [Concomitant]
  4. ALL OTHER THERAPEUTIC PRODUCTS [Concomitant]

REACTIONS (2)
  - AGITATION [None]
  - SEROTONIN SYNDROME [None]
